FAERS Safety Report 17169599 (Version 3)
Quarter: 2020Q1

REPORT INFORMATION
  Report Type: Spontaneous
  Country: US (occurrence: US)
  Receive Date: 20191218
  Receipt Date: 20200113
  Transmission Date: 20200409
  Serious: Yes (Hospitalization, Other)
  Sender: FDA-Public Use
  Company Number: US-VERTEX PHARMACEUTICALS-2019-012915

PATIENT
  Age: 42 Year
  Sex: Female

DRUGS (13)
  1. LEVONORGESTREL. [Concomitant]
     Active Substance: LEVONORGESTREL
     Dosage: 20 MICROGRAM
     Route: 015
     Dates: start: 20140129
  2. SODIUM CHLORIDE. [Concomitant]
     Active Substance: SODIUM CHLORIDE
     Dosage: 4 MLS  NEBULIZATION THREE TIMES DAILY
     Dates: start: 20190904
  3. LOSARTAN. [Concomitant]
     Active Substance: LOSARTAN
     Dosage: 50 MG DAILY
     Route: 048
     Dates: start: 20190218
  4. LORATADINE. [Concomitant]
     Active Substance: LORATADINE
     Dosage: 1 DOSAGE FORM DAILY
     Route: 048
     Dates: start: 20190221
  5. ADVAIR HFA [Concomitant]
     Active Substance: FLUTICASONE PROPIONATE\SALMETEROL XINAFOATE
     Dosage: 1 PUFF (250-50 MCG), BID
     Dates: start: 20190904
  6. AZELASTINE. [Concomitant]
     Active Substance: AZELASTINE HYDROCHLORIDE
     Dosage: 2 SPRAYS, BID
     Route: 045
     Dates: start: 20190221
  7. AZITHROMYCIN ANHYDROUS. [Concomitant]
     Active Substance: AZITHROMYCIN ANHYDROUS
     Dosage: 1 DOSAGE FORM DAILY
     Route: 048
     Dates: start: 20190904
  8. PANCREAZE [AMYLASE;LIPASE;PROTEASE] [Concomitant]
     Dosage: 3 DOSAGE FORM (16800 UNITS), 3 TIMES DAILY
     Route: 048
     Dates: start: 20190904
  9. VITAMIN D3 [Concomitant]
     Active Substance: CHOLECALCIFEROL
     Dosage: 5000 UNITS DAILY
     Route: 048
  10. TRIKAFTA [Suspect]
     Active Substance: ELEXACAFTOR\IVACAFTOR\TEZACAFTOR
     Indication: CYSTIC FIBROSIS
     Dosage: 2 TAB (100 MG ELEXACAFTOR/ 50 MG TEZACAFTOR/ 75 MG IVACAFTOR) AM; 1 TAB (150MG IVACAFTOR) PM
     Route: 048
     Dates: start: 20191115
  11. CAYSTON [Concomitant]
     Active Substance: AZTREONAM
     Indication: PSEUDOMONAS INFECTION
     Dosage: 84 ML NEBULIZER SOLUTION
     Dates: start: 20191223
  12. PULMOZYME [Concomitant]
     Active Substance: DORNASE ALFA
     Dosage: 150 MILLILITER, BID
     Dates: start: 20191205
  13. PROAIR HFA [Concomitant]
     Active Substance: ALBUTEROL SULFATE
     Dosage: 2 PUFFS, BID
     Dates: start: 20190904

REACTIONS (3)
  - Cholecystitis acute [Recovered/Resolved]
  - Alanine aminotransferase increased [Recovered/Resolved]
  - Aspartate aminotransferase increased [Recovered/Resolved]

NARRATIVE: CASE EVENT DATE: 201912
